FAERS Safety Report 9978177 (Version 2)
Quarter: 2014Q1

REPORT INFORMATION
  Report Type: Spontaneous
  Country: US (occurrence: US)
  Receive Date: 20140306
  Receipt Date: 20140307
  Transmission Date: 20141002
  Serious: Yes (Other)
  Sender: FDA-Public Use
  Company Number: US-PFIZER INC-2014062668

PATIENT
  Age: 63 Year
  Sex: Female
  Weight: 99.77 kg

DRUGS (6)
  1. NEURONTIN [Suspect]
     Indication: POST HERPETIC NEURALGIA
     Dosage: 600 MG, 3X/DAY
     Route: 048
     Dates: start: 20140220
  2. NEURONTIN [Suspect]
     Indication: PAIN
  3. INSULIN [Concomitant]
     Indication: DIABETES MELLITUS
     Dosage: UNK
  4. METFORMIN [Concomitant]
     Indication: DIABETES MELLITUS
     Dosage: 1000 MG, 2X/DAY
  5. PERCOCET [Concomitant]
     Indication: PAIN
     Dosage: UNK
  6. PERCOCET [Concomitant]
     Indication: BACK PAIN

REACTIONS (3)
  - Back disorder [Unknown]
  - Drug ineffective [Unknown]
  - Pain in extremity [Unknown]
